FAERS Safety Report 21583911 (Version 1)
Quarter: 2022Q4

REPORT INFORMATION
  Report Type: Spontaneous
  Country: US (occurrence: US)
  Receive Date: 20221111
  Receipt Date: 20221111
  Transmission Date: 20230112
  Serious: Yes (Death)
  Sender: FDA-Public Use
  Company Number: US-JNJFOC-20221123198

PATIENT
  Sex: Male

DRUGS (1)
  1. XARELTO [Suspect]
     Active Substance: RIVAROXABAN
     Indication: Pancreatic carcinoma
     Route: 048

REACTIONS (2)
  - Death [Fatal]
  - Off label use [Unknown]
